FAERS Safety Report 16034966 (Version 1)
Quarter: 2019Q1

REPORT INFORMATION
  Report Type: Spontaneous
  Country: US (occurrence: US)
  Receive Date: 20190205
  Receipt Date: 20190205
  Transmission Date: 20190418
  Serious: No
  Sender: FDA-Public Use
  Company Number: None

PATIENT

DRUGS (12)
  1. ASPIRIN. [Concomitant]
     Active Substance: ASPIRIN
  2. RESTASIS [Concomitant]
     Active Substance: CYCLOSPORINE
  3. PRESSER VISION ARLDS 2 [Concomitant]
  4. CALCIUM [Concomitant]
     Active Substance: CALCIUM
  5. HUMIRA [Concomitant]
     Active Substance: ADALIMUMAB
  6. METRONIDAZOLE CREAM [Concomitant]
     Active Substance: METRONIDAZOLE
  7. FOLIC ACID. [Concomitant]
     Active Substance: FOLIC ACID
  8. VITAMIN D [Concomitant]
     Active Substance: CHOLECALCIFEROL
  9. VITAMIN D3 [Concomitant]
     Active Substance: CHOLECALCIFEROL
  10. LIPITOR [Concomitant]
     Active Substance: ATORVASTATIN CALCIUM
  11. LISINOPRIL. [Concomitant]
     Active Substance: LISINOPRIL
  12. PROLIA [Suspect]
     Active Substance: DENOSUMAB
     Indication: BONE DENSITY ABNORMAL
     Dosage: ?          OTHER FREQUENCY:SHOT EVERY 6 MOS;?
     Dates: start: 20180329, end: 20181203

REACTIONS (1)
  - Exposed bone in jaw [None]

NARRATIVE: CASE EVENT DATE: 201812
